FAERS Safety Report 21654733 (Version 1)
Quarter: 2022Q4

REPORT INFORMATION
  Report Type: Spontaneous
  Country: US (occurrence: US)
  Receive Date: 20221129
  Receipt Date: 20221129
  Transmission Date: 20230113
  Serious: Yes (Other)
  Sender: FDA-Public Use
  Company Number: None

PATIENT
  Age: 57 Year
  Sex: Female
  Weight: 169 kg

DRUGS (1)
  1. BUPROPION HYDROCHLORIDE [Suspect]
     Active Substance: BUPROPION HYDROCHLORIDE
     Indication: Smoking cessation therapy
     Route: 048

REACTIONS (7)
  - Hallucination [Unknown]
  - Nightmare [Unknown]
  - Mood altered [Unknown]
  - Alopecia [Unknown]
  - Weight decreased [Unknown]
  - Anxiety [Unknown]
  - Product use in unapproved indication [Unknown]
